FAERS Safety Report 19169467 (Version 4)
Quarter: 2021Q3

REPORT INFORMATION
  Report Type: Report from Study
  Country: CA (occurrence: CA)
  Receive Date: 20210422
  Receipt Date: 20210716
  Transmission Date: 20211014
  Serious: Yes (Other)
  Sender: FDA-Public Use
  Company Number: CA-GLAXOSMITHKLINE-CA2020GSK261520

PATIENT
  Age: 50 Year
  Sex: Female
  Weight: 82 kg

DRUGS (21)
  1. CONTRAVE [Suspect]
     Active Substance: BUPROPION HYDROCHLORIDE\NALTREXONE HYDROCHLORIDE
     Dosage: 3 DF, QD 90MG/8MG, 2 TABLETS EVERY MORNING, 2 TABLET EVERY EVENING (2 DOSAGE FORMS,1
     Route: 048
     Dates: start: 20210413, end: 20210616
  2. CONTRAVE [Suspect]
     Active Substance: BUPROPION HYDROCHLORIDE\NALTREXONE HYDROCHLORIDE
     Dosage: 3 DF, QD(90MG/8MG, 2 TABLETS EVERY MORNING, 1 TABLET EVERY EVENING (1 IN 12 HR))
     Route: 048
     Dates: start: 20210617, end: 20210626
  3. CONTRAVE [Suspect]
     Active Substance: BUPROPION HYDROCHLORIDE\NALTREXONE HYDROCHLORIDE
     Dosage: 1 DF, QD(90MG/8MG, 1 DOSAGE FORMS,1 IN 12 HR
     Route: 048
     Dates: start: 20210627
  4. VYVANSE [Concomitant]
     Active Substance: LISDEXAMFETAMINE DIMESYLATE
     Indication: ATTENTION DEFICIT HYPERACTIVITY DISORDER
     Dosage: 1 DF, BID (40MG IN MORNING, 30MG AT LUNCH)
     Route: 048
     Dates: end: 20210131
  5. CONTRAVE [Suspect]
     Active Substance: BUPROPION HYDROCHLORIDE\NALTREXONE HYDROCHLORIDE
     Dosage: 2 DF, QD (90MG/8MG, 1 TABLET TWICE A DAY (2 DOSAGE FORMS,1 IN 12 HR))
     Route: 048
     Dates: start: 20210330, end: 20210405
  6. QUETIAPINE. [Concomitant]
     Active Substance: QUETIAPINE
     Indication: ANXIETY
  7. VYVANSE [Concomitant]
     Active Substance: LISDEXAMFETAMINE DIMESYLATE
     Dosage: 1 DF, BID (50MG IN MORNING, 20MG AT LUNCH (1 IN 12 HR)
     Route: 048
     Dates: start: 202103
  8. BUPROPION HYDROCHLORIDE. [Suspect]
     Active Substance: BUPROPION HYDROCHLORIDE
     Dosage: 1 DF, 1D
     Route: 048
     Dates: start: 20210323, end: 20210329
  9. CONTRAVE [Suspect]
     Active Substance: BUPROPION HYDROCHLORIDE\NALTREXONE HYDROCHLORIDE
     Dosage: 1 DF, BID (90MG/8MG, 2 TABLET IN THE MORNING AND 2 TABLET IN THE EVENING)
     Route: 048
     Dates: start: 20201111, end: 20210118
  10. CONTRAVE [Suspect]
     Active Substance: BUPROPION HYDROCHLORIDE\NALTREXONE HYDROCHLORIDE
     Dosage: 1 DF, QD(90MG/8MG, 1 TABLET DAILY (SECOND ATTEMPT) (1 DOSAGE FORMS,1 IN 1 D))
     Route: 048
     Dates: start: 20210323, end: 20210329
  11. ZOLOFT [Concomitant]
     Active Substance: SERTRALINE HYDROCHLORIDE
     Dosage: 150 MG, QD
     Route: 048
     Dates: start: 20210516
  12. CONTRAVE [Suspect]
     Active Substance: BUPROPION HYDROCHLORIDE\NALTREXONE HYDROCHLORIDE
     Indication: WEIGHT DECREASED
     Dosage: UNK (90MG/8MG)
     Route: 048
     Dates: start: 2020, end: 20201110
  13. BUPROPION HYDROCHLORIDE. [Suspect]
     Active Substance: BUPROPION HYDROCHLORIDE
     Dosage: 450 MG
     Route: 048
     Dates: start: 20210227, end: 20210322
  14. CONTRAVE [Suspect]
     Active Substance: BUPROPION HYDROCHLORIDE\NALTREXONE HYDROCHLORIDE
     Dosage: 2 DF, QD (90MG/8MG, 2 TABLETS IN THE MORNING (2 DOSAGE FORMS,1 IN 1 D))
     Route: 048
     Dates: start: 20210119, end: 20210131
  15. ZOPICLONE [Concomitant]
     Active Substance: ZOPICLONE
     Indication: INSOMNIA
     Dosage: 12.5 MG, QD (AT BEDTIME)
     Route: 048
     Dates: start: 20210516
  16. ZOLOFT [Concomitant]
     Active Substance: SERTRALINE HYDROCHLORIDE
     Indication: DEPRESSION
     Dosage: 100 MG, QD
     Route: 048
     Dates: start: 202103, end: 20210515
  17. BUPROPION HYDROCHLORIDE. [Suspect]
     Active Substance: BUPROPION HYDROCHLORIDE
     Indication: ANXIETY
     Dosage: 300 MG
     Route: 048
     Dates: start: 20210201, end: 20210226
  18. CONTRAVE [Suspect]
     Active Substance: BUPROPION HYDROCHLORIDE\NALTREXONE HYDROCHLORIDE
     Dosage: 3 DF, QD (90MG/8MG, 2 TABLETS EVERY MORNING, 1 TABLET EVERY EVENING (1 IN 12 HR))
     Route: 048
     Dates: start: 20210406, end: 20210412
  19. PROZAC [Concomitant]
     Active Substance: FLUOXETINE HYDROCHLORIDE
     Indication: DEPRESSION
     Dosage: 20 MG, QD
     Route: 048
     Dates: start: 20201110
  20. RITALIN [Concomitant]
     Active Substance: METHYLPHENIDATE HYDROCHLORIDE
     Indication: ATTENTION DEFICIT HYPERACTIVITY DISORDER
     Dosage: 10 MG, QD (AT LUNCH)
     Route: 048
     Dates: start: 20210201, end: 202102
  21. QUETIAPINE. [Concomitant]
     Active Substance: QUETIAPINE
     Indication: INSOMNIA
     Dosage: AT BEDTIME (12.5 MG,1 IN 1 D)
     Route: 048
     Dates: start: 20210516

REACTIONS (16)
  - Suicidal ideation [Recovered/Resolved]
  - Patient dissatisfaction with treatment [Unknown]
  - Tremor [Recovered/Resolved]
  - Nausea [Recovered/Resolved]
  - Contraindicated product administered [Unknown]
  - COVID-19 [Unknown]
  - Depression [Recovered/Resolved]
  - Dehydration [Not Recovered/Not Resolved]
  - Feeling abnormal [Recovered/Resolved]
  - Drug titration error [Unknown]
  - Dry mouth [Recovered/Resolved]
  - Anxiety [Recovered/Resolved]
  - Muscle spasms [Recovered/Resolved]
  - Product prescribing error [Unknown]
  - Food craving [Unknown]
  - Asthenia [Unknown]

NARRATIVE: CASE EVENT DATE: 2020
